FAERS Safety Report 4285167-0 (Version None)
Quarter: 2004Q1

REPORT INFORMATION
  Report Type: 
  Country: None (occurrence: None)
  Receive Date: 20040202
  Receipt Date: 20040121
  Transmission Date: 20041129
  Serious: Yes (Other)
  Sender: FDA-Public Use
  Company Number: 2004195412US

PATIENT
  Age: 50 Year
  Sex: Female
  Weight: 56.7 kg

DRUGS (2)
  1. ROGAINE [Suspect]
     Indication: ALOPECIA
     Dosage: 1 ML, BID, TOPICAL
     Route: 061
  2. LIPITOR [Suspect]
     Indication: HYPERCHOLESTEROLAEMIA
     Dosage: QD
     Dates: start: 20010101

REACTIONS (1)
  - PANCREATITIS [None]
